FAERS Safety Report 17635756 (Version 5)
Quarter: 2021Q3

REPORT INFORMATION
  Report Type: Spontaneous
  Country: JP (occurrence: JP)
  Receive Date: 20200406
  Receipt Date: 20210927
  Transmission Date: 20211014
  Serious: Yes (Hospitalization)
  Sender: FDA-Public Use
  Company Number: JP-AMGEN-JPNSP2020054024

PATIENT
  Age: 57 Year
  Sex: Male
  Weight: 70.5 kg

DRUGS (13)
  1. PARSABIV [Suspect]
     Active Substance: ETELCALCETIDE HYDROCHLORIDE
     Indication: HYPERPARATHYROIDISM SECONDARY
     Dosage: 2.5 MILLIGRAM, Q56H
     Route: 010
     Dates: start: 20190812, end: 20190911
  2. NESP [Concomitant]
     Active Substance: DARBEPOETIN ALFA
     Dosage: 60 MUG, QW
     Route: 065
     Dates: start: 20190916, end: 20190930
  3. FOSRENOL [Concomitant]
     Active Substance: LANTHANUM CARBONATE
     Dosage: 2250 MG, EVERYDAY
     Route: 048
  4. NESP [Concomitant]
     Active Substance: DARBEPOETIN ALFA
     Dosage: 90 UG, QW
     Route: 065
     Dates: end: 20190909
  5. MAXACALCITOL [Concomitant]
     Active Substance: MAXACALCITOL
     Dosage: 2.5 UG, Q56H
     Route: 065
     Dates: end: 20191113
  6. MAXACALCITOL [Concomitant]
     Active Substance: MAXACALCITOL
     Dosage: 5 MUG, Q56H
     Route: 065
     Dates: start: 20191115, end: 20200207
  7. PARSABIV [Suspect]
     Active Substance: ETELCALCETIDE HYDROCHLORIDE
     Dosage: 7.5 MILLIGRAM, Q56H
     Route: 010
     Dates: start: 20191118, end: 20200207
  8. RIONA [Concomitant]
     Active Substance: FERRIC CITRATE ANHYDROUS
     Dosage: 750 MG, EVERYDAY
     Route: 065
     Dates: start: 20190814, end: 20191115
  9. PARSABIV [Suspect]
     Active Substance: ETELCALCETIDE HYDROCHLORIDE
     Dosage: 5 MILLIGRAM, Q56H
     Route: 010
     Dates: start: 20190913, end: 20191115
  10. PARSABIV [Suspect]
     Active Substance: ETELCALCETIDE HYDROCHLORIDE
     Dosage: 10 MILLIGRAM, Q56H
     Route: 010
     Dates: start: 20200210
  11. MAXACALCITOL [Concomitant]
     Active Substance: MAXACALCITOL
     Dosage: 10 MUG, Q56H
     Route: 065
     Dates: start: 20200210, end: 20210106
  12. FESIN [SACCHARATED IRON OXIDE] [Concomitant]
     Active Substance: IRON SUCROSE
     Dosage: 40 MG, QW
     Route: 065
     Dates: start: 20210712, end: 20210830
  13. MAXACALCITOL [Concomitant]
     Active Substance: MAXACALCITOL
     Dosage: 5 MUG, Q56H
     Route: 065
     Dates: start: 20210108

REACTIONS (2)
  - Shunt stenosis [Recovered/Resolved]
  - Shunt stenosis [Recovered/Resolved]

NARRATIVE: CASE EVENT DATE: 20191224
